FAERS Safety Report 9518514 (Version 1)
Quarter: 2013Q3

REPORT INFORMATION
  Report Type: Spontaneous
  Country: US (occurrence: None)
  Receive Date: 20130910
  Receipt Date: 20130910
  Transmission Date: 20140515
  Serious: Yes (Other)
  Sender: FDA-Public Use
  Company Number: 1235575

PATIENT
  Age: 83 Year
  Sex: Female

DRUGS (3)
  1. AURO-DRI [Suspect]
     Indication: EAR CONGESTION
     Dosage: 1 DROP INTO LEFT EAR X 1 DOSE
     Dates: start: 20130719, end: 20130719
  2. ORAL ANTIHYPERTENSIVE [Concomitant]
  3. CHOLESTEROL MEDICATION [Concomitant]

REACTIONS (1)
  - Deafness unilateral [None]
